FAERS Safety Report 10098793 (Version 2)
Quarter: 2014Q2

REPORT INFORMATION
  Report Type: Spontaneous
  Country: NL (occurrence: NL)
  Receive Date: 20140423
  Receipt Date: 20140522
  Transmission Date: 20141212
  Serious: Yes (Hospitalization, Other)
  Sender: FDA-Public Use
  Company Number: NL-IPSEN BIOPHARMACEUTICALS, INC.-2014-1957

PATIENT
  Age: 55 Year
  Sex: Female

DRUGS (4)
  1. SOMATULINE AUTOSOLUTION 120MG [Suspect]
     Indication: METASTASES TO LIVER
     Dosage: 120MG
     Route: 058
     Dates: start: 20120903
  2. SOMATULINE AUTOSOLUTION 120MG [Suspect]
     Indication: OFF LABEL USE
  3. FOSINOPRILNATRIUM [Concomitant]
     Indication: PRODUCT USED FOR UNKNOWN INDICATION
     Route: 065
  4. METOPROLOLSUCCINAAT [Concomitant]
     Indication: PRODUCT USED FOR UNKNOWN INDICATION
     Dosage: 1/2 TABLET
     Route: 065

REACTIONS (3)
  - Cancer surgery [Recovering/Resolving]
  - Ileus [Recovering/Resolving]
  - Abdominal abscess [Unknown]
